FAERS Safety Report 16642168 (Version 1)
Quarter: 2019Q3

REPORT INFORMATION
  Report Type: Report from Study
  Country: US (occurrence: US)
  Receive Date: 20190729
  Receipt Date: 20190729
  Transmission Date: 20191004
  Serious: Yes (Hospitalization)
  Sender: FDA-Public Use
  Company Number: US-ROCHE-2363788

PATIENT
  Sex: Female
  Weight: 69.01 kg

DRUGS (11)
  1. FENTANYL. [Concomitant]
     Active Substance: FENTANYL
     Dosage: 25 MCG/HR PATCH 72 HRS 1 PATCH TO SKIN TRANSDERMALLY 2-3 DAYS
     Route: 062
  2. RESTORIL [Concomitant]
     Active Substance: TEMAZEPAM
     Route: 065
  3. BUPROPION HCL ER [Concomitant]
     Active Substance: BUPROPION HYDROCHLORIDE
  4. CITALOPRAM HYDROBROMIDE. [Concomitant]
     Active Substance: CITALOPRAM HYDROBROMIDE
     Dosage: 20 MG TABLET
     Route: 065
  5. ASPIRIN 81 [Concomitant]
     Active Substance: ASPIRIN
     Dosage: 81 MG TABLET
     Route: 048
  6. GRALISE [Concomitant]
     Active Substance: GABAPENTIN
  7. SIMVASTATIN. [Concomitant]
     Active Substance: SIMVASTATIN
     Route: 048
  8. NUTROPIN [Suspect]
     Active Substance: SOMATROPIN
     Indication: FATIGUE
     Dosage: 10 MG/2 ML SOLUTION
     Route: 058
  9. COLCHICINE. [Concomitant]
     Active Substance: COLCHICINE
     Dosage: 0.6 MG TABLET
     Route: 048
  10. NUTROPIN [Suspect]
     Active Substance: SOMATROPIN
     Indication: GROWTH HORMONE DEFICIENCY
     Route: 058
  11. ATIVAN [Concomitant]
     Active Substance: LORAZEPAM
     Route: 048

REACTIONS (9)
  - Fatigue [Unknown]
  - Sleep disorder [Unknown]
  - Depression [Unknown]
  - Device related infection [Unknown]
  - Weight decreased [Unknown]
  - Pain [Unknown]
  - Libido decreased [Unknown]
  - Asthenia [Unknown]
  - Headache [Unknown]
